FAERS Safety Report 4642200-1 (Version None)
Quarter: 2005Q2

REPORT INFORMATION
  Report Type: 
  Country: None (occurrence: None)
  Receive Date: 20050420
  Receipt Date: 20050405
  Transmission Date: 20051028
  Serious: Yes (Other)
  Sender: FDA-Public Use
  Company Number: USA050392589

PATIENT
  Age: 81 Year
  Sex: Female
  Weight: 49 kg

DRUGS (10)
  1. FORTEO [Suspect]
     Indication: OSTEOPOROSIS
     Dosage: 20 UG DAY
     Dates: start: 20041108
  2. SYNTHROID [Concomitant]
  3. DIGITEX (DIGOXIN -SANDOZ) [Concomitant]
  4. ATENOLOL [Concomitant]
  5. MAXZIDE [Concomitant]
  6. CALCIUM GLUCONATE [Concomitant]
  7. CENTRUM [Concomitant]
  8. VITAMIN C [Concomitant]
  9. LIPITOR [Concomitant]
  10. COUMADIN [Concomitant]

REACTIONS (3)
  - BLADDER NEOPLASM [None]
  - MEDICAL DEVICE COMPLICATION [None]
  - METRORRHAGIA [None]
